FAERS Safety Report 19376835 (Version 2)
Quarter: 2021Q2

REPORT INFORMATION
  Report Type: Spontaneous
  Country: US (occurrence: US)
  Receive Date: 20210604
  Receipt Date: 20210615
  Transmission Date: 20210717
  Serious: No
  Sender: FDA-Public Use
  Company Number: US-SA-2021SA181790

PATIENT
  Sex: Female

DRUGS (1)
  1. NASACORT ALLERGY 24HR [Suspect]
     Active Substance: TRIAMCINOLONE ACETONIDE
     Indication: RHINITIS ALLERGIC
     Dosage: DRUG STRUCTURE DOSAGE : 2 SPRAYS EACH NOSTRIL DRUG INTERVAL DOSAGE : EVERYDAY DRUG TREATMENT DURATIO
     Route: 045

REACTIONS (1)
  - Drug ineffective [Unknown]
